FAERS Safety Report 9425068 (Version 1)
Quarter: 2013Q3

REPORT INFORMATION
  Report Type: Spontaneous
  Country: US (occurrence: US)
  Receive Date: 20130729
  Receipt Date: 20130729
  Transmission Date: 20140515
  Serious: Yes (Hospitalization)
  Sender: FDA-Public Use
  Company Number: US-GLAXOSMITHKLINE-A0783358A

PATIENT
  Age: 40 Year
  Sex: Male
  Weight: 143 kg

DRUGS (1)
  1. AVANDIA [Suspect]
     Indication: DIABETES MELLITUS
     Dosage: 4MG PER DAY
     Route: 048
     Dates: start: 2000, end: 200401

REACTIONS (7)
  - Myocardial infarction [Not Recovered/Not Resolved]
  - Cardiac failure congestive [Unknown]
  - Acute coronary syndrome [Unknown]
  - Disability [Unknown]
  - Cardiovascular disorder [Unknown]
  - Depression [Unknown]
  - Obesity [Unknown]
